FAERS Safety Report 21098492 (Version 2)
Quarter: 2022Q3

REPORT INFORMATION
  Report Type: Spontaneous
  Country: ES (occurrence: ES)
  Receive Date: 20220719
  Receipt Date: 20220906
  Transmission Date: 20221027
  Serious: Yes (Life-Threatening, Hospitalization, Other)
  Sender: FDA-Public Use
  Company Number: DEX 2022-0076(0)

PATIENT
  Age: 77 Year
  Sex: Male

DRUGS (24)
  1. DEXMEDETOMIDINE HYDROCHLORIDE [Suspect]
     Active Substance: DEXMEDETOMIDINE HYDROCHLORIDE
     Indication: Delirium
     Dosage: UNK
     Route: 065
  2. HALOPERIDOL [Suspect]
     Active Substance: HALOPERIDOL
     Indication: Delirium
     Dosage: UNK
     Route: 065
  3. OLANZAPINE [Suspect]
     Active Substance: OLANZAPINE
     Indication: Delirium
     Dosage: UNK
     Route: 065
  4. QUETIAPINE [Suspect]
     Active Substance: QUETIAPINE
     Indication: Delirium
     Dosage: UNK
     Route: 065
  5. CLONIDINE [Suspect]
     Active Substance: CLONIDINE
     Indication: Delirium
     Dosage: UNK
     Route: 065
  6. BENZODIAZEPINE [Suspect]
     Active Substance: BENZODIAZEPINE
     Indication: Delirium
     Dosage: UNK
     Route: 065
  7. MORPHINE [Suspect]
     Active Substance: MORPHINE
     Indication: Post laminectomy syndrome
     Dosage: 7997 MG, 1 D, FOR 25 YEARS
     Route: 037
  8. MORPHINE [Suspect]
     Active Substance: MORPHINE
     Indication: Pain
     Dosage: 4.9 MG, 1 D
     Route: 037
  9. MORPHINE [Suspect]
     Active Substance: MORPHINE
     Dosage: UNK, PATIENT CONTROLLED ANALGESIA PUMP, 25% CONTINUOUS INFUSION AND 25% ON-DEMAND BOLUS
     Route: 042
  10. MORPHINE [Suspect]
     Active Substance: MORPHINE
     Dosage: 450 MILLIGRAM (150 MG, 1 IN 8 HR)
     Route: 048
  11. MORPHINE [Suspect]
     Active Substance: MORPHINE
     Dosage: UNK, DOSE INCREASED
     Route: 042
  12. MORPHINE [Suspect]
     Active Substance: MORPHINE
     Dosage: ORAL CONTROLLED-RELEASE MORPHINE (MST) WAS STARTED PROGRESSIVELY UNTIL 50%  OF THE EQUIVALENT DOSE O
     Route: 048
  13. MORPHINE [Suspect]
     Active Substance: MORPHINE
     Dosage: UNK, DOSE DECREASED
     Route: 065
  14. MORPHINE [Suspect]
     Active Substance: MORPHINE
     Dosage: UNK, DESCENDING ORAL MORPHINE REGIMEN; 25% OF THE EQUIVALENT DOSE OF INTRATHECAL MORPHINE
     Route: 048
  15. CLOXACILLIN [Suspect]
     Active Substance: CLOXACILLIN
     Indication: Device related infection
     Dosage: UNK
     Route: 065
  16. CEFTAZIDIME [Suspect]
     Active Substance: CEFTAZIDIME
     Indication: Device related infection
     Dosage: UNK
     Route: 065
  17. MORPHINE [Suspect]
     Active Substance: MORPHINE
     Indication: Post laminectomy syndrome
     Dosage: ORAL CONTROLLED-RELEASE MORPHINE (MST) WAS STARED PROGRESSIVELY UNTIL 50% OF EQUIVALENT DOSE OF IMP
     Route: 048
  18. MORPHINE [Suspect]
     Active Substance: MORPHINE
     Indication: Pain
     Dosage: 8 MG
     Route: 065
  19. MORPHINE [Suspect]
     Active Substance: MORPHINE
     Dosage: 360 MG (120 MG, 1 IN 8 HR)
     Route: 065
  20. MORPHINE [Suspect]
     Active Substance: MORPHINE
     Dosage: 450 MG (150 MG, 1 IN 8 HR)
     Route: 065
  21. MORPHINE [Suspect]
     Active Substance: MORPHINE
     Dosage: 25% OF THE EQUIVALENT DOSE OF INTRATHECAL MORPHINE PUMP, AND ANOTHER 25% OF THE DOSE WAS PROGRAMMED
     Route: 065
  22. MORPHINE [Suspect]
     Active Substance: MORPHINE
     Dosage: 600 MG (200 MG, 1 IN 8 HR)
     Route: 065
  23. CEFTAZIDIME [Concomitant]
     Active Substance: CEFTAZIDIME
     Indication: Postoperative wound infection
     Dosage: UNK
     Route: 065
  24. CLOXACILLIN [Concomitant]
     Active Substance: CLOXACILLIN
     Indication: Postoperative wound infection
     Dosage: UNK
     Route: 065

REACTIONS (8)
  - Drug ineffective for unapproved indication [Unknown]
  - Haemodynamic instability [Recovered/Resolved]
  - Somnolence [Recovering/Resolving]
  - Respiratory failure [Recovered/Resolved]
  - Delirium [Recovering/Resolving]
  - Condition aggravated [Recovered/Resolved]
  - Product use in unapproved indication [Unknown]
  - Hypersomnia [Recovering/Resolving]
